FAERS Safety Report 8021606-7 (Version None)
Quarter: 2012Q1

REPORT INFORMATION
  Report Type: 
  Country: None (occurrence: None)
  Receive Date: 20120104
  Receipt Date: 20120104
  Transmission Date: 20120608
  Serious: Yes (Disabling, Other)
  Sender: FDA-Public Use
  Company Number: None

PATIENT
  Age: 59 Year
  Sex: Female
  Weight: 57.606 kg

DRUGS (1)
  1. AMOXICILLIN [Suspect]
     Indication: VAGINAL INFECTION
     Dosage: 1 CAPSULE
     Dates: start: 20111229, end: 20111229

REACTIONS (7)
  - HYPERHIDROSIS [None]
  - SWOLLEN TONGUE [None]
  - THROAT TIGHTNESS [None]
  - BURNING SENSATION [None]
  - VOMITING [None]
  - DIZZINESS [None]
  - PRURITUS [None]
